FAERS Safety Report 5931100-2 (Version None)
Quarter: 2008Q4

REPORT INFORMATION
  Report Type: 
  Country: None (occurrence: None)
  Receive Date: 20081022
  Receipt Date: 20081010
  Transmission Date: 20090506
  Serious: Yes (Hospitalization)
  Sender: FDA-Public Use
  Company Number: ADE2008-0353

PATIENT
  Age: 75 Year
  Sex: Female
  Weight: 75 kg

DRUGS (6)
  1. SIMVASTATIN [Suspect]
     Indication: HYPERLIPIDAEMIA
     Dosage: 40MG - PO
     Route: 048
     Dates: end: 20080909
  2. AMOXICILLIN [Suspect]
     Dosage: 500MG - TID - PO
     Route: 048
     Dates: start: 20080902, end: 20080916
  3. CLARITHROMYCIN [Suspect]
     Dosage: 500MG - BID - PO
     Route: 048
     Dates: start: 20080902, end: 20080916
  4. OMEPRAZOLE [Suspect]
     Indication: DYSPEPSIA
     Dosage: 40MG - QD - PO
     Route: 048
     Dates: start: 20080902, end: 20080916
  5. ASPIRIN [Concomitant]
  6. QUININE [Concomitant]

REACTIONS (1)
  - RHABDOMYOLYSIS [None]
